FAERS Safety Report 14505405 (Version 1)
Quarter: 2018Q1

REPORT INFORMATION
  Report Type: Spontaneous
  Country: US (occurrence: US)
  Receive Date: 20180207
  Receipt Date: 20180207
  Transmission Date: 20180509
  Serious: Yes (Life-Threatening, Hospitalization)
  Sender: FDA-Public Use
  Company Number: None

PATIENT
  Sex: Female

DRUGS (1)
  1. BRENTUXIMAB [Suspect]
     Active Substance: BRENTUXIMAB VEDOTIN
     Dates: start: 20180131, end: 20180131

REACTIONS (2)
  - Dyspnoea [None]
  - Depressed level of consciousness [None]

NARRATIVE: CASE EVENT DATE: 20180131
